FAERS Safety Report 23400128 (Version 1)
Quarter: 2024Q1

REPORT INFORMATION
  Report Type: Spontaneous
  Country: US (occurrence: US)
  Receive Date: 20240114
  Receipt Date: 20240114
  Transmission Date: 20240410
  Serious: Yes (Hospitalization)
  Sender: FDA-Public Use
  Company Number: US-FMCRTG-FMC-2401-000009

PATIENT
  Age: 75 Year
  Sex: Female
  Weight: 73.5 kg

DRUGS (1)
  1. DELFLEX [Suspect]
     Active Substance: CALCIUM CHLORIDE\DEXTROSE\MAGNESIUM CHLORIDE\SODIUM CHLORIDE\SODIUM LACTATE
     Indication: End stage renal disease
     Dosage: 4 EXCHANGES X 2000 MLS, TOTAL 8000 MLS, 9 HOURS?TOTAL, DWELL 2 HOURS, NO DAYTIME EXCHANGES
     Route: 033

REACTIONS (1)
  - Infection [Unknown]

NARRATIVE: CASE EVENT DATE: 20231230
